FAERS Safety Report 8891220 (Version 8)
Quarter: 2013Q2

REPORT INFORMATION
  Report Type: Spontaneous
  Country: US (occurrence: US)
  Receive Date: 20121107
  Receipt Date: 20130415
  Transmission Date: 20140414
  Serious: Yes (Hospitalization, Other)
  Sender: FDA-Public Use
  Company Number: US-009507513-1210USA012606

PATIENT
  Sex: Female
  Weight: 71.66 kg

DRUGS (7)
  1. FOSAMAX [Suspect]
     Indication: OSTEOPOROSIS
     Dosage: 10 MG, QD
     Route: 048
     Dates: start: 199612, end: 200407
  2. FOSAMAX [Suspect]
     Dosage: 70 MG, QW
     Route: 048
     Dates: start: 200409, end: 200809
  3. ALENDRONATE SODIUM [Suspect]
     Indication: OSTEOPOROSIS
     Dosage: 70 MG, QW
     Route: 048
     Dates: start: 200810, end: 201102
  4. BONIVA [Suspect]
     Indication: OSTEOPOROSIS
     Dosage: 150 MG, QM
     Route: 048
     Dates: start: 201101, end: 201204
  5. DIOVAN [Concomitant]
     Indication: HYPERTENSION
     Dosage: UNK
     Dates: start: 1998
  6. ISOPTIN [Concomitant]
     Indication: HYPERTENSION
  7. PRAVASTATIN SODIUM [Concomitant]
     Indication: HYPERLIPIDAEMIA
     Dosage: 40 MG, QD

REACTIONS (51)
  - Femur fracture [Recovering/Resolving]
  - Intramedullary rod insertion [Unknown]
  - Intramedullary rod insertion [Unknown]
  - Carpal tunnel decompression [Unknown]
  - Simple mastectomy [Unknown]
  - Metastatic neoplasm [Unknown]
  - Haemorrhoid operation [Unknown]
  - Intraductal proliferative breast lesion [Unknown]
  - Colitis [Unknown]
  - Femur fracture [Recovered/Resolved]
  - Low turnover osteopathy [Unknown]
  - Impaired healing [Unknown]
  - Depression [Unknown]
  - Anxiety [Not Recovered/Not Resolved]
  - Sinusitis [Unknown]
  - Pleurisy [Unknown]
  - Migraine [Unknown]
  - Polyp [Unknown]
  - Irritable bowel syndrome [Unknown]
  - Sleep apnoea syndrome [Unknown]
  - Rectal haemorrhage [Unknown]
  - Dyspnoea [Unknown]
  - Osteoarthritis [Unknown]
  - Vitamin D deficiency [Unknown]
  - Psoriasis [Unknown]
  - Deep vein thrombosis [Unknown]
  - Procedural nausea [Unknown]
  - Cystocele [Unknown]
  - Atrophy [Unknown]
  - Rectal haemorrhage [Recovered/Resolved]
  - Haematuria [Recovered/Resolved]
  - White blood cells urine [Unknown]
  - Gallbladder disorder [Unknown]
  - Occult blood positive [Recovered/Resolved]
  - Protein urine [Unknown]
  - Cystopexy [Unknown]
  - Adverse drug reaction [Unknown]
  - Blood potassium decreased [Unknown]
  - Breast disorder female [Unknown]
  - Hypothyroidism [Unknown]
  - Stress [Unknown]
  - Aortic disorder [Unknown]
  - Muscle disorder [Unknown]
  - Hiatus hernia [Unknown]
  - Gastrooesophageal reflux disease [Unknown]
  - Pain in extremity [Unknown]
  - Abdominal pain [Recovered/Resolved]
  - Abdominal pain upper [Unknown]
  - Pain in extremity [Unknown]
  - Musculoskeletal pain [Unknown]
  - Oesophagitis [Unknown]
